FAERS Safety Report 20740729 (Version 2)
Quarter: 2022Q2

REPORT INFORMATION
  Report Type: Spontaneous
  Country: GB (occurrence: GB)
  Receive Date: 20220422
  Receipt Date: 20220425
  Transmission Date: 20220721
  Serious: Yes (Life-Threatening, Hospitalization)
  Sender: FDA-Public Use
  Company Number: GB-PFIZER INC-06P-167-0330910-00

PATIENT
  Age: 64 Year
  Sex: Female

DRUGS (6)
  1. VERAPAMIL HCL [Interacting]
     Active Substance: VERAPAMIL HYDROCHLORIDE
     Indication: Atrial fibrillation
     Dosage: 80 MG, 3X/DAY
  2. SOTALOL [Interacting]
     Active Substance: SOTALOL
     Indication: Atrial fibrillation
     Dosage: UNK
  3. DIGOXIN [Interacting]
     Active Substance: DIGOXIN
     Dosage: UNK
  4. WARFARIN [Concomitant]
     Active Substance: WARFARIN
     Dosage: UNK
  5. AMILORIDE HYDROCHLORIDE\FUROSEMIDE [Concomitant]
     Active Substance: AMILORIDE HYDROCHLORIDE\FUROSEMIDE
     Indication: Atrial fibrillation
     Dosage: FOR 1 DAY, UNK
  6. PERINDOPRIL [Concomitant]
     Active Substance: PERINDOPRIL
     Indication: Atrial fibrillation
     Dosage: FOR 1 DAY, UNK

REACTIONS (3)
  - Drug interaction [Recovered/Resolved]
  - Hypotension [Recovered/Resolved]
  - Toxicity to various agents [Recovered/Resolved]
